FAERS Safety Report 8241112-4 (Version None)
Quarter: 2012Q1

REPORT INFORMATION
  Report Type: 
  Country: None (occurrence: None)
  Receive Date: 20120328
  Receipt Date: 20120322
  Transmission Date: 20120608
  Serious: Yes (Life-Threatening)
  Sender: FDA-Public Use
  Company Number: GB-VIIV HEALTHCARE LIMITED-B0790305A

PATIENT
  Age: 5 Year
  Sex: Male

DRUGS (4)
  1. LAMIVUDINE (EPIVIR HBV) [Concomitant]
     Indication: HIV INFECTION
     Dosage: 150MG PER DAY
     Dates: start: 20120216, end: 20120229
  2. EFAVIRENZ [Concomitant]
     Indication: HIV INFECTION
     Dosage: 300MG PER DAY
     Route: 048
     Dates: start: 20120216, end: 20120229
  3. ABACAVIR [Suspect]
     Indication: HIV INFECTION
     Dosage: 300MG PER DAY
     Route: 048
     Dates: start: 20120216, end: 20120301
  4. AUGMENTIN '125' [Concomitant]
     Indication: LOWER RESPIRATORY TRACT INFECTION
     Dosage: 10ML PER DAY
     Dates: start: 20110207

REACTIONS (6)
  - CONJUNCTIVAL HYPERAEMIA [None]
  - OXYGEN SATURATION DECREASED [None]
  - POOR PERIPHERAL CIRCULATION [None]
  - WHEEZING [None]
  - RASH GENERALISED [None]
  - COUGH [None]
